FAERS Safety Report 21121265 (Version 1)
Quarter: 2022Q3

REPORT INFORMATION
  Report Type: Spontaneous
  Country: US (occurrence: None)
  Receive Date: 20220722
  Receipt Date: 20220722
  Transmission Date: 20221026
  Serious: Yes (Other)
  Sender: FDA-Public Use
  Company Number: None

PATIENT
  Age: 60 Year
  Sex: Female
  Weight: 120.15 kg

DRUGS (27)
  1. FARXIGA [Suspect]
     Active Substance: DAPAGLIFLOZIN PROPANEDIOL
     Indication: Chronic kidney disease
     Dosage: FREQUENCY : DAILY;?
     Route: 048
  2. FARXIGA [Concomitant]
     Active Substance: DAPAGLIFLOZIN PROPANEDIOL
  3. MAGNESIUM [Concomitant]
     Active Substance: MAGNESIUM
  4. VITAMINS B12, C, D3, E [Concomitant]
  5. OMEGA 3 [Concomitant]
     Active Substance: CAPSAICIN
  6. PROBIOTICS NOS [Concomitant]
     Active Substance: PROBIOTICS NOS
  7. POLYETHYLENE GLYCOL 3350 [Concomitant]
     Active Substance: POLYETHYLENE GLYCOL 3350
  8. HERBALS\TURMERIC [Concomitant]
     Active Substance: HERBALS\TURMERIC
  9. METAMUCIL [Concomitant]
     Active Substance: PLANTAGO SEED
  10. IODIZED SALT [Concomitant]
  11. CHOLESTYRAMINE [Concomitant]
     Active Substance: CHOLESTYRAMINE
  12. CHONDROITIN SULFATE (BOVINE)\GLUCOSAMINE HYDROCHLORIDE [Concomitant]
     Active Substance: CHONDROITIN SULFATE (BOVINE)\GLUCOSAMINE HYDROCHLORIDE
  13. TYLENOL [Concomitant]
     Active Substance: ACETAMINOPHEN
  14. SIMETHICONE (DIMETHICONE) [Concomitant]
     Active Substance: DIMETHICONE
  15. LACTASE [Concomitant]
     Active Substance: LACTASE
  16. LEVOTHYROXINE [Concomitant]
     Active Substance: LEVOTHYROXINE
  17. LIOTHYRONINE [Concomitant]
     Active Substance: LIOTHYRONINE
  18. WELLBUTRIN [Concomitant]
     Active Substance: BUPROPION HYDROCHLORIDE
  19. DESMOPRESSIN [Concomitant]
     Active Substance: DESMOPRESSIN
  20. GABAPENTIN [Concomitant]
     Active Substance: GABAPENTIN
  21. HYDROCORTISONE [Concomitant]
     Active Substance: HYDROCORTISONE
  22. LORAZEPAM [Concomitant]
     Active Substance: LORAZEPAM
  23. QUETIAPINE [Concomitant]
     Active Substance: QUETIAPINE
  24. VENLAFAXINE [Concomitant]
     Active Substance: VENLAFAXINE HYDROCHLORIDE
  25. CLONOPIN [Concomitant]
     Active Substance: CLONAZEPAM
  26. FLUCROCORTISONE [Concomitant]
  27. AMOXICILLIN [Concomitant]
     Active Substance: AMOXICILLIN

REACTIONS (8)
  - Blood pressure systolic decreased [None]
  - Blood glucose decreased [None]
  - Confusional state [None]
  - Somnolence [None]
  - Depression [None]
  - Asthenia [None]
  - Muscular weakness [None]
  - Quality of life decreased [None]

NARRATIVE: CASE EVENT DATE: 20220705
